FAERS Safety Report 23041854 (Version 5)
Quarter: 2025Q1

REPORT INFORMATION
  Report Type: Report from Study
  Country: US (occurrence: US)
  Receive Date: 20231007
  Receipt Date: 20250101
  Transmission Date: 20250409
  Serious: Yes (Hospitalization, Other)
  Sender: TAKEDA
  Company Number: US-TAKEDA-2023TUS081696

PATIENT
  Sex: Male
  Weight: 83 kg

DRUGS (3)
  1. VEDOLIZUMAB [Suspect]
     Active Substance: VEDOLIZUMAB
     Indication: Colitis ulcerative
  2. VEDOLIZUMAB [Suspect]
     Active Substance: VEDOLIZUMAB
     Dosage: 300 MILLIGRAM, Q6WEEKS
  3. LIALDA [Suspect]
     Active Substance: MESALAMINE
     Indication: Colitis ulcerative
     Dosage: UNK UNK, QD
     Dates: start: 2017

REACTIONS (8)
  - Colitis ulcerative [Unknown]
  - Dehydration [Unknown]
  - Stress [Unknown]
  - Product dose omission issue [Recovering/Resolving]
  - Weight decreased [Unknown]
  - Off label use [Unknown]
  - Abdominal distension [Unknown]
  - Rash [Unknown]
